FAERS Safety Report 25355253 (Version 1)
Quarter: 2025Q2

REPORT INFORMATION
  Report Type: Report from Study
  Country: US (occurrence: US)
  Receive Date: 20250524
  Receipt Date: 20250524
  Transmission Date: 20250717
  Serious: Yes (Hospitalization)
  Sender: ABBVIE
  Company Number: US-ABBVIE-6295588

PATIENT
  Age: 36 Year
  Sex: Male

DRUGS (1)
  1. RINVOQ [Suspect]
     Active Substance: UPADACITINIB
     Indication: Colitis ulcerative
     Route: 048
     Dates: start: 20250411, end: 20250511

REACTIONS (3)
  - Clostridium test positive [Unknown]
  - Colitis ulcerative [Recovered/Resolved]
  - Haemorrhage [Unknown]

NARRATIVE: CASE EVENT DATE: 20250510
